FAERS Safety Report 18190710 (Version 1)
Quarter: 2020Q3

REPORT INFORMATION
  Report Type: Spontaneous
  Country: CA (occurrence: CA)
  Receive Date: 20200824
  Receipt Date: 20200824
  Transmission Date: 20201103
  Serious: Yes (Hospitalization)
  Sender: FDA-Public Use
  Company Number: CA-ASTRAZENECA-2020SF04784

PATIENT
  Age: 71 Year
  Sex: Female
  Weight: 89 kg

DRUGS (9)
  1. VENLAFAXINE HYDROCHLORIDE. [Suspect]
     Active Substance: VENLAFAXINE HYDROCHLORIDE
     Indication: DEPRESSION
     Route: 065
  2. HUMALOG [Concomitant]
     Active Substance: INSULIN LISPRO
     Indication: TYPE 2 DIABETES MELLITUS
     Route: 065
  3. LANTUS [Concomitant]
     Active Substance: INSULIN GLARGINE
     Indication: TYPE 2 DIABETES MELLITUS
     Route: 058
  4. QUETIAPINE FUMARATE. [Suspect]
     Active Substance: QUETIAPINE FUMARATE
     Route: 048
  5. DEXILANT [Concomitant]
     Active Substance: DEXLANSOPRAZOLE
     Indication: DYSPEPSIA
  6. LIPITOR [Concomitant]
     Active Substance: ATORVASTATIN CALCIUM
     Indication: ARTERIOSCLEROSIS
     Route: 065
  7. BROMAZEPAM [Suspect]
     Active Substance: BROMAZEPAM
     Indication: DEPRESSION
     Route: 065
  8. LOSARTAN. [Concomitant]
     Active Substance: LOSARTAN
     Indication: HYPERTENSION
     Route: 065
  9. METFORMIN [Concomitant]
     Active Substance: METFORMIN HYDROCHLORIDE
     Indication: TYPE 2 DIABETES MELLITUS
     Route: 065

REACTIONS (2)
  - Patella fracture [Recovered/Resolved]
  - Toxicity to various agents [Recovered/Resolved]
